FAERS Safety Report 8398295-5 (Version None)
Quarter: 2012Q2

REPORT INFORMATION
  Report Type: 
  Country: None (occurrence: None)
  Receive Date: 20120531
  Receipt Date: 20120525
  Transmission Date: 20120825
  Serious: Yes (Other)
  Sender: FDA-Public Use
  Company Number: US-PURDUE-USA-2012-0087606

PATIENT
  Sex: Female

DRUGS (14)
  1. IBUPROFEN [Suspect]
     Indication: INFLAMMATION
  2. OXYCODONE HCL [Suspect]
     Indication: NECK PAIN
     Dosage: 5 MG, UNK
  3. SOMA [Suspect]
     Indication: MUSCLE RELAXANT THERAPY
  4. OXYCONTIN [Suspect]
     Indication: INFLAMMATION
  5. OXYCODONE HCL [Suspect]
     Indication: INFLAMMATION
  6. DILAUDID [Suspect]
     Indication: NECK PAIN
  7. DIAZEPAM [Suspect]
     Indication: MUSCLE RELAXANT THERAPY
     Dosage: 5 MG, UNK
  8. AMITRIPTYLINE HCL [Concomitant]
     Indication: PRODUCT USED FOR UNKNOWN INDICATION
  9. IBUPROFEN [Suspect]
     Indication: NECK PAIN
  10. PROMETHAZINE [Concomitant]
     Indication: PRODUCT USED FOR UNKNOWN INDICATION
     Dosage: 25 MG, UNK
  11. OXYCONTIN [Suspect]
     Indication: NECK PAIN
     Dosage: 40 MG, UNK
  12. DILAUDID [Suspect]
     Indication: INFLAMMATION
     Dosage: 8 MG, UNK
     Route: 048
  13. CHLORDIAZEPOXIDE [Concomitant]
     Indication: PRODUCT USED FOR UNKNOWN INDICATION
  14. PRILOSEC [Concomitant]

REACTIONS (9)
  - INTERVERTEBRAL DISC OPERATION [None]
  - DRUG INEFFECTIVE [None]
  - ACCIDENT [None]
  - ELBOW OPERATION [None]
  - CARPAL TUNNEL DECOMPRESSION [None]
  - TARSAL TUNNEL DECOMPRESSION [None]
  - INTERVERTEBRAL DISC PROTRUSION [None]
  - SURGERY [None]
  - BENIGN NEOPLASM OF SPINAL CORD [None]
